FAERS Safety Report 10160533 (Version 2)
Quarter: 2014Q3

REPORT INFORMATION
  Report Type: Spontaneous
  Country: US (occurrence: US)
  Receive Date: 20140508
  Receipt Date: 20140909
  Transmission Date: 20150326
  Serious: Yes (Hospitalization)
  Sender: FDA-Public Use
  Company Number: US-BAYER-2014-065586

PATIENT
  Age: 36 Year
  Sex: Female
  Weight: 70.3 kg

DRUGS (2)
  1. MIRENA [Suspect]
     Active Substance: LEVONORGESTREL
     Indication: CONTRACEPTION
     Dosage: 20 MCG/24HR, CONT
     Route: 015
     Dates: start: 20120315, end: 20120426
  2. VICODIN [Concomitant]
     Active Substance: ACETAMINOPHEN\HYDROCODONE BITARTRATE
     Indication: PAIN

REACTIONS (8)
  - Pain [None]
  - Device difficult to use [None]
  - Ovarian cyst [None]
  - Injury [None]
  - Uterine perforation [None]
  - Adhesiolysis [None]
  - Emotional distress [None]
  - Endometriosis [None]

NARRATIVE: CASE EVENT DATE: 201204
